FAERS Safety Report 17673834 (Version 1)
Quarter: 2020Q2

REPORT INFORMATION
  Report Type: Spontaneous
  Country: US (occurrence: US)
  Receive Date: 20200415
  Receipt Date: 20200415
  Transmission Date: 20200714
  Serious: No
  Sender: FDA-Public Use
  Company Number: US-LUNDBECK-DKLU3015210

PATIENT
  Age: 6 Month
  Sex: Male

DRUGS (2)
  1. SABRIL [Suspect]
     Active Substance: VIGABATRIN
     Indication: INFANTILE SPASMS
  2. SABRIL [Suspect]
     Active Substance: VIGABATRIN
     Indication: CEREBRAL DISORDER
     Route: 048
     Dates: start: 202003

REACTIONS (1)
  - Drug ineffective [Unknown]
